FAERS Safety Report 10731958 (Version 1)
Quarter: 2015Q1

REPORT INFORMATION
  Report Type: Spontaneous
  Country: US (occurrence: None)
  Receive Date: 20150120
  Receipt Date: 20150120
  Transmission Date: 20150721
  Serious: Yes (Death)
  Sender: FDA-Public Use
  Company Number: 2015010075

PATIENT
  Age: 79 Year
  Sex: Female

DRUGS (3)
  1. ACETAMINOPHEN (ACETAMINOPHEN) [Suspect]
     Active Substance: ACETAMINOPHEN
  2. FENTANYL (FENTANYL) [Suspect]
     Active Substance: FENTANYL
  3. OXYCODONE (EXTENDED RELEASE) [Suspect]
     Active Substance: OXYCODONE

REACTIONS (2)
  - Poisoning [None]
  - Completed suicide [None]

NARRATIVE: CASE EVENT DATE: 2013
